FAERS Safety Report 14010171 (Version 1)
Quarter: 2017Q3

REPORT INFORMATION
  Report Type: Spontaneous
  Country: DE (occurrence: DE)
  Receive Date: 20170926
  Receipt Date: 20170926
  Transmission Date: 20171128
  Serious: Yes (Other)
  Sender: FDA-Public Use
  Company Number: DE-AUROBINDO-AUR-APL-2017-40869

PATIENT
  Age: 73 Year
  Sex: Male

DRUGS (3)
  1. IBUPROFEN. [Suspect]
     Active Substance: IBUPROFEN
     Dosage: 600 MG, TWO TIMES A DAY
     Route: 048
     Dates: start: 201605
  2. VOLTAREN [Suspect]
     Active Substance: DICLOFENAC SODIUM
     Indication: PRODUCT USED FOR UNKNOWN INDICATION
     Route: 065
  3. IBUPROFEN. [Suspect]
     Active Substance: IBUPROFEN
     Indication: TRAUMATIC HAEMATOMA
     Dosage: 400 MG, ONCE A DAY
     Route: 048
     Dates: start: 201605

REACTIONS (2)
  - Nephropathy toxic [Recovered/Resolved]
  - Haematuria [Recovered/Resolved]

NARRATIVE: CASE EVENT DATE: 201605
